FAERS Safety Report 19999690 (Version 2)
Quarter: 2022Q1

REPORT INFORMATION
  Report Type: Report from Study
  Country: US (occurrence: US)
  Receive Date: 20211027
  Receipt Date: 20220216
  Transmission Date: 20220424
  Serious: Yes (Other)
  Sender: FDA-Public Use
  Company Number: US-ABBVIE-21K-163-4136247-00

PATIENT
  Sex: Female

DRUGS (2)
  1. HUMIRA [Suspect]
     Active Substance: ADALIMUMAB
     Indication: Rheumatoid arthritis
     Dosage: CITRATE FREE
     Route: 058
  2. HUMIRA [Suspect]
     Active Substance: ADALIMUMAB
     Dosage: CITRATE FREE
     Route: 058

REACTIONS (7)
  - Meningioma [Not Recovered/Not Resolved]
  - Joint swelling [Recovered/Resolved]
  - Adverse food reaction [Unknown]
  - Diplopia [Recovering/Resolving]
  - Stress [Unknown]
  - Peripheral swelling [Recovered/Resolved]
  - Visual impairment [Not Recovered/Not Resolved]
